FAERS Safety Report 9342186 (Version 1)
Quarter: 2013Q2

REPORT INFORMATION
  Report Type: Spontaneous
  Country: CN (occurrence: CN)
  Receive Date: 20130611
  Receipt Date: 20130611
  Transmission Date: 20140414
  Serious: Yes (Other)
  Sender: FDA-Public Use
  Company Number: CN-ASTRAZENECA-2013SE41630

PATIENT
  Age: 28469 Day
  Sex: Female
  Weight: 60 kg

DRUGS (2)
  1. CANDESARTAN [Suspect]
     Indication: HYPERTENSION
     Route: 048
     Dates: start: 20121207, end: 20121221
  2. METOPROLOL [Suspect]
     Indication: HYPERTENSION
     Route: 048
     Dates: start: 20121207, end: 20121221

REACTIONS (1)
  - Dysgeusia [Recovering/Resolving]
